FAERS Safety Report 16734806 (Version 1)
Quarter: 2019Q3

REPORT INFORMATION
  Report Type: Spontaneous
  Country: JP (occurrence: JP)
  Receive Date: 20190823
  Receipt Date: 20190823
  Transmission Date: 20191005
  Serious: Yes (Other)
  Sender: FDA-Public Use
  Company Number: JP-BAYER-2019-155394

PATIENT
  Sex: Male

DRUGS (2)
  1. CIPROXAN-I.V.400 [Suspect]
     Active Substance: CIPROFLOXACIN
  2. CIPROXAN 200 MG [Suspect]
     Active Substance: CIPROFLOXACIN

REACTIONS (2)
  - Adrenal insufficiency [None]
  - Hyponatraemia [None]
